FAERS Safety Report 5409803-8 (Version None)
Quarter: 2007Q3

REPORT INFORMATION
  Report Type: 
  Country: None (occurrence: None)
  Receive Date: 20070809
  Receipt Date: 20070731
  Transmission Date: 20080115
  Serious: Yes (Hospitalization)
  Sender: FDA-Public Use
  Company Number: US-ROCHE-493509

PATIENT
  Age: 38 Year
  Sex: Female

DRUGS (14)
  1. BONIVA [Suspect]
     Indication: OSTEOPOROSIS
     Dosage: REPORTED AS 3 MG- INFUSED, LAST SHOT TAKEN ON 06 JULY 2007
     Route: 042
     Dates: start: 20070103
  2. NASONEX [Concomitant]
  3. VITAMINE D [Concomitant]
  4. PROTONIX [Concomitant]
  5. TOPAMAX [Concomitant]
  6. NORTRIPTYLINE HCL [Concomitant]
  7. LASIX + K [Concomitant]
     Dosage: REPORTED AS ^LASIX POTASSIUM)
  8. VALIUM [Concomitant]
  9. SOMA [Concomitant]
  10. M.V.I. [Concomitant]
  11. VITAMIN B-12 [Concomitant]
  12. ACTIQ [Concomitant]
     Indication: PAIN
  13. OSCAL [Concomitant]
  14. SINGULAIR [Concomitant]

REACTIONS (13)
  - ARTHRALGIA [None]
  - BONE PAIN [None]
  - DISCOMFORT [None]
  - INFLUENZA LIKE ILLNESS [None]
  - INFUSION SITE PAIN [None]
  - MYALGIA [None]
  - NEPHROLITHIASIS [None]
  - POST PROCEDURAL COMPLICATION [None]
  - POST PROCEDURAL SWELLING [None]
  - PYREXIA [None]
  - URINARY TRACT INFECTION [None]
  - URTICARIA [None]
  - VASCULAR RUPTURE [None]
